FAERS Safety Report 9041252 (Version 1)
Quarter: 2013Q1

REPORT INFORMATION
  Report Type: Spontaneous
  Country: US (occurrence: None)
  Receive Date: 20130123
  Receipt Date: 20130123
  Transmission Date: 20140127
  Serious: Yes (Hospitalization)
  Sender: FDA-Public Use
  Company Number: None

PATIENT
  Sex: 0

DRUGS (1)
  1. MEFLOQUINE [Suspect]

REACTIONS (9)
  - Fall [None]
  - Abasia [None]
  - Speech disorder [None]
  - Cerebral malaria [None]
  - Activities of daily living impaired [None]
  - Dysphemia [None]
  - Movement disorder [None]
  - Mental disorder [None]
  - Mental disorder [None]
